FAERS Safety Report 13242307 (Version 1)
Quarter: 2017Q1

REPORT INFORMATION
  Report Type: Spontaneous
  Country: US (occurrence: US)
  Receive Date: 20170216
  Receipt Date: 20170216
  Transmission Date: 20170428
  Serious: No
  Sender: FDA-Public Use
  Company Number: None

PATIENT
  Age: 45 Year
  Sex: Female
  Weight: 56.7 kg

DRUGS (5)
  1. SINGULAIR [Concomitant]
     Active Substance: MONTELUKAST SODIUM
  2. DILTIAZEM. [Concomitant]
     Active Substance: DILTIAZEM
  3. LEVALBUTEROL. [Concomitant]
     Active Substance: LEVALBUTEROL
  4. TUDORZA PRESSAIR [Suspect]
     Active Substance: ACLIDINIUM BROMIDE
     Indication: CHRONIC OBSTRUCTIVE PULMONARY DISEASE
     Route: 055
     Dates: start: 20170121, end: 20170214
  5. VENTILION [Concomitant]

REACTIONS (10)
  - Rash [None]
  - Ocular hyperaemia [None]
  - Pruritus [None]
  - Pollakiuria [None]
  - Conjunctivitis [None]
  - Eye pain [None]
  - Ocular discomfort [None]
  - Eye discharge [None]
  - Halo vision [None]
  - Urticaria [None]

NARRATIVE: CASE EVENT DATE: 20170213
